FAERS Safety Report 20057146 (Version 1)
Quarter: 2021Q4

REPORT INFORMATION
  Report Type: Spontaneous
  Country: ES (occurrence: ES)
  Receive Date: 20211111
  Receipt Date: 20211111
  Transmission Date: 20220303
  Serious: Yes (Death, Hospitalization)
  Sender: FDA-Public Use
  Company Number: None

PATIENT
  Age: 76 Year
  Sex: Male

DRUGS (4)
  1. QUETIAPINE [Interacting]
     Active Substance: QUETIAPINE
     Indication: Acute psychosis
     Dosage: 300 MILLIGRAM, QD
     Route: 048
     Dates: start: 20210301, end: 20210407
  2. HALOPERIDOL [Interacting]
     Active Substance: HALOPERIDOL
     Indication: Acute psychosis
     Dosage: 30 GTT DROPS, QD
     Route: 048
     Dates: start: 20210331, end: 20210407
  3. LITHIUM CARBONATE [Interacting]
     Active Substance: LITHIUM CARBONATE
     Indication: Acute psychosis
     Dosage: 200 MICROGRAM, Q8H
     Route: 048
     Dates: start: 20210324, end: 20210407
  4. HALOPERIDOL [Concomitant]
     Active Substance: HALOPERIDOL
     Indication: Acute psychosis
     Dosage: 35 GTT DROPS, QD
     Route: 048
     Dates: start: 20210226, end: 20210331

REACTIONS (2)
  - Neuroleptic malignant syndrome [Fatal]
  - Drug interaction [Unknown]

NARRATIVE: CASE EVENT DATE: 20210408
